FAERS Safety Report 20502970 (Version 1)
Quarter: 2022Q1

REPORT INFORMATION
  Report Type: Spontaneous
  Country: JP (occurrence: JP)
  Receive Date: 20220222
  Receipt Date: 20220222
  Transmission Date: 20220423
  Serious: Yes (Other)
  Sender: FDA-Public Use
  Company Number: JP-LUPIN PHARMACEUTICALS INC.-2022-02265

PATIENT
  Age: 84 Year
  Sex: Female

DRUGS (3)
  1. IMATINIB MESYLATE [Interacting]
     Active Substance: IMATINIB MESYLATE
     Indication: Metastases to liver
     Dosage: 300 MG, QD
     Route: 065
     Dates: start: 201904
  2. GEFITINIB [Interacting]
     Active Substance: GEFITINIB
     Indication: Non-small cell lung cancer recurrent
     Dosage: 250 MG, QD
     Route: 065
  3. ERLOTINIB [Concomitant]
     Active Substance: ERLOTINIB
     Indication: Non-small cell lung cancer recurrent
     Dosage: 100 MG, QD
     Route: 065
     Dates: start: 201907

REACTIONS (2)
  - Diarrhoea [Unknown]
  - Drug interaction [Unknown]

NARRATIVE: CASE EVENT DATE: 20190101
